FAERS Safety Report 9314787 (Version 1)
Quarter: 2013Q2

REPORT INFORMATION
  Report Type: Spontaneous
  Country: NZ (occurrence: NZ)
  Receive Date: 20130529
  Receipt Date: 20130529
  Transmission Date: 20140414
  Serious: Yes (Hospitalization)
  Sender: FDA-Public Use
  Company Number: NZ-ELI_LILLY_AND_COMPANY-NZ201302008972

PATIENT
  Age: 53 Year
  Sex: Male
  Weight: 110 kg

DRUGS (9)
  1. ZYPREXA RELPREVV [Suspect]
     Indication: SCHIZOAFFECTIVE DISORDER
     Dosage: 300 MG, 2/M
     Route: 030
  2. SODIUM VALPROATE [Concomitant]
     Dosage: 1 G, BID
     Route: 048
  3. QUINAPRIL [Concomitant]
     Dosage: 5 MG, EACH MORNING
     Route: 048
  4. ASPIRIN [Concomitant]
     Dosage: 100 MG, QD
     Route: 048
  5. METFORMIN [Concomitant]
     Dosage: 500 G, BID
     Route: 048
  6. FUROSEMIDE [Concomitant]
     Dosage: 20 MG, EACH MORNING
     Route: 048
  7. SIMVASTATIN [Concomitant]
     Dosage: 40 MG, EACH EVENING
     Route: 048
  8. QUETIAPINE [Concomitant]
     Dosage: 50 MG, MIDDAY
  9. QUETIAPINE [Concomitant]
     Dosage: 150 MG, EACH EVENING

REACTIONS (2)
  - Sedation [Recovered/Resolved]
  - Sinus tachycardia [Recovered/Resolved]
